FAERS Safety Report 13670338 (Version 1)
Quarter: 2017Q2

REPORT INFORMATION
  Report Type: Report from Study
  Country: CN (occurrence: CN)
  Receive Date: 20170620
  Receipt Date: 20170620
  Transmission Date: 20170830
  Serious: Yes (Hospitalization)
  Sender: FDA-Public Use
  Company Number: CN-ASTELLAS-2017US023816

PATIENT
  Age: 62 Year
  Sex: Male

DRUGS (1)
  1. ERLOTINIB [Suspect]
     Active Substance: ERLOTINIB
     Indication: NON-SMALL CELL LUNG CANCER
     Route: 048
     Dates: start: 20110901

REACTIONS (5)
  - Urinary incontinence [Unknown]
  - Diarrhoea [Unknown]
  - Senile dementia [Unknown]
  - Asthenia [Unknown]
  - Anal incontinence [Unknown]

NARRATIVE: CASE EVENT DATE: 201608
